FAERS Safety Report 5237532-2 (Version None)
Quarter: 2007Q1

REPORT INFORMATION
  Report Type: 
  Country: None (occurrence: None)
  Receive Date: 20070213
  Receipt Date: 20070205
  Transmission Date: 20070707
  Serious: Yes (Other)
  Sender: FDA-Public Use
  Company Number: BR-PFIZER INC-2007002700

PATIENT
  Sex: Male

DRUGS (7)
  1. VIAGRA [Suspect]
     Indication: ERECTILE DYSFUNCTION
     Route: 048
     Dates: start: 20040101, end: 20070101
  2. CAVERJECT POWDER, STERILE [Suspect]
     Indication: ERECTILE DYSFUNCTION
  3. CIALIS [Suspect]
     Indication: ERECTILE DYSFUNCTION
  4. LEVITRA [Suspect]
     Indication: ERECTILE DYSFUNCTION
  5. AMARYL [Concomitant]
     Route: 048
  6. COZAAR [Concomitant]
     Route: 048
  7. LORAX [Concomitant]
     Route: 048

REACTIONS (3)
  - CONFUSIONAL STATE [None]
  - DRUG EFFECT DECREASED [None]
  - EYE HAEMORRHAGE [None]
